FAERS Safety Report 20294967 (Version 2)
Quarter: 2022Q1

REPORT INFORMATION
  Report Type: Spontaneous
  Country: US (occurrence: None)
  Receive Date: 20220104
  Receipt Date: 20220110
  Transmission Date: 20220423
  Serious: No
  Sender: FDA-Public Use
  Company Number: 2021A886508

PATIENT
  Age: 68 Year
  Sex: Female
  Weight: 59 kg

DRUGS (4)
  1. PULMICORT FLEXHALER [Suspect]
     Active Substance: BUDESONIDE
     Indication: Asthma
     Dosage: 180 MCG 2 PUFFS DAY
     Route: 055
     Dates: start: 20211205
  2. PULMICORT FLEXHALER [Suspect]
     Active Substance: BUDESONIDE
     Indication: Bronchial obstruction
     Dosage: 180 MCG 2 PUFFS DAY
     Route: 055
     Dates: start: 20211205
  3. MONTELUKAST [Concomitant]
     Active Substance: MONTELUKAST SODIUM
     Indication: Asthma
     Route: 065
  4. LEVOTHYROXINE [Concomitant]
     Active Substance: LEVOTHYROXINE
     Indication: Hypothyroidism
     Dosage: .88 DAILY

REACTIONS (7)
  - Pneumonia [Unknown]
  - Osteoporosis [Unknown]
  - Product taste abnormal [Unknown]
  - Body height decreased [Unknown]
  - Dyspnoea [Unknown]
  - Product odour abnormal [Unknown]
  - Device use issue [Unknown]
